FAERS Safety Report 14184027 (Version 1)
Quarter: 2017Q4

REPORT INFORMATION
  Report Type: Spontaneous
  Country: US (occurrence: US)
  Receive Date: 20171113
  Receipt Date: 20171113
  Transmission Date: 20180321
  Serious: No
  Sender: FDA-Public Use
  Company Number: US-BAYER-2017-218473

PATIENT
  Age: 62 Year
  Sex: Male

DRUGS (1)
  1. BETASERON [Suspect]
     Active Substance: INTERFERON BETA-1B
     Indication: MULTIPLE SCLEROSIS
     Dosage: 0.3 MG, UNK
     Route: 058
     Dates: start: 20140114

REACTIONS (10)
  - Fatigue [None]
  - Memory impairment [None]
  - Speech disorder [None]
  - Musculoskeletal stiffness [None]
  - Dry throat [None]
  - Muscular weakness [None]
  - Vision blurred [None]
  - Gait disturbance [None]
  - Micturition urgency [None]
  - Cough [None]
